FAERS Safety Report 9790171 (Version 1)
Quarter: 2013Q4

REPORT INFORMATION
  Report Type: Spontaneous
  Country: US (occurrence: US)
  Receive Date: 20131231
  Receipt Date: 20131231
  Transmission Date: 20140711
  Serious: Yes (Other)
  Sender: FDA-Public Use
  Company Number: US-SA-2013SA135321

PATIENT
  Sex: Male

DRUGS (1)
  1. HECTOROL [Suspect]
     Indication: PRODUCT USED FOR UNKNOWN INDICATION
     Route: 065
     Dates: start: 20131219

REACTIONS (5)
  - Unresponsive to stimuli [Unknown]
  - Eye movement disorder [Unknown]
  - Musculoskeletal stiffness [Unknown]
  - Agitation [Unknown]
  - Vomiting [Unknown]
